FAERS Safety Report 8189181-4 (Version None)
Quarter: 2012Q1

REPORT INFORMATION
  Report Type: 
  Country: None (occurrence: None)
  Receive Date: 20120306
  Receipt Date: 20120306
  Transmission Date: 20120608
  Serious: Yes (Other)
  Sender: FDA-Public Use
  Company Number: None

PATIENT
  Sex: Female
  Weight: 36.4 kg

DRUGS (1)
  1. LAMICTAL ODT [Suspect]
     Indication: CONVULSION
     Dosage: 5 BID PO
     Route: 048
     Dates: start: 20101103

REACTIONS (2)
  - ABNORMAL BEHAVIOUR [None]
  - CONVULSION [None]
